FAERS Safety Report 7871134-4 (Version None)
Quarter: 2011Q4

REPORT INFORMATION
  Report Type: 
  Country: None (occurrence: None)
  Receive Date: 20111029
  Receipt Date: 20110225
  Transmission Date: 20120403
  Serious: No
  Sender: FDA-Public Use
  Company Number: US-AMGEN-USASP2011009226

PATIENT
  Age: 40 Year
  Sex: Female
  Weight: 124.72 kg

DRUGS (3)
  1. ENBREL [Suspect]
     Indication: OSTEOARTHRITIS
  2. ENBREL [Suspect]
     Indication: RHEUMATOID ARTHRITIS
     Dosage: 50 MG, QWK
     Route: 058
     Dates: start: 20101215, end: 20110131
  3. NORVASC [Concomitant]

REACTIONS (17)
  - UPPER-AIRWAY COUGH SYNDROME [None]
  - BLOOD POTASSIUM DECREASED [None]
  - LYMPHADENOPATHY [None]
  - PYREXIA [None]
  - PAIN [None]
  - PHARYNGITIS [None]
  - HYPERTENSION [None]
  - CHILLS [None]
  - VOCAL CORD DISORDER [None]
  - BLOOD GLUCOSE INCREASED [None]
  - RHEUMATOID ARTHRITIS [None]
  - ASTHMA [None]
  - DYSPHONIA [None]
  - OROPHARYNGEAL PAIN [None]
  - HYPERHIDROSIS [None]
  - RED BLOOD CELL SEDIMENTATION RATE INCREASED [None]
  - DIARRHOEA [None]
